FAERS Safety Report 11148698 (Version 4)
Quarter: 2015Q4

REPORT INFORMATION
  Report Type: Spontaneous
  Country: JP (occurrence: JP)
  Receive Date: 20150529
  Receipt Date: 20151118
  Transmission Date: 20160304
  Serious: Yes (Hospitalization, Other)
  Sender: FDA-Public Use
  Company Number: JP-BRISTOL-MYERS SQUIBB COMPANY-BMS-2015-034886

PATIENT
  Age: 74 Year
  Sex: Female
  Weight: 37 kg

DRUGS (5)
  1. ROTIGOTINE [Suspect]
     Active Substance: ROTIGOTINE
     Dosage: 13.5 MG, UNK
     Route: 062
     Dates: start: 20141112, end: 20141116
  2. ROTIGOTINE [Suspect]
     Active Substance: ROTIGOTINE
     Indication: PARKINSON^S DISEASE
     Dosage: 4.5 MG, UNK
     Route: 062
     Dates: start: 20141104
  3. ROTIGOTINE [Suspect]
     Active Substance: ROTIGOTINE
     Dosage: 9 MG, UNK
     Route: 062
     Dates: start: 20141107, end: 20141111
  4. ABILIFY [Suspect]
     Active Substance: ARIPIPRAZOLE
     Indication: PRODUCT USED FOR UNKNOWN INDICATION
     Dosage: 3 MG, UNK
     Route: 065
     Dates: start: 20131125
  5. ROTIGOTINE [Suspect]
     Active Substance: ROTIGOTINE
     Dosage: 18 MG, UNK
     Route: 062
     Dates: start: 20141117

REACTIONS (9)
  - Haemorrhagic anaemia [Recovered/Resolved]
  - Deep brain stimulation [Unknown]
  - Drug titration error [Unknown]
  - Dysphagia [Recovered/Resolved]
  - Fall [Unknown]
  - Postoperative wound infection [Recovered/Resolved]
  - Laceration [Recovered/Resolved]
  - Asphyxia [Unknown]
  - Pneumonia aspiration [Unknown]

NARRATIVE: CASE EVENT DATE: 20141014
